FAERS Safety Report 17869710 (Version 1)
Quarter: 2020Q2

REPORT INFORMATION
  Report Type: Spontaneous
  Country: US (occurrence: US)
  Receive Date: 20200607
  Receipt Date: 20200607
  Transmission Date: 20200714
  Serious: Yes (Other)
  Sender: FDA-Public Use
  Company Number: None

PATIENT
  Age: 47 Year
  Sex: Male
  Weight: 108.7 kg

DRUGS (5)
  1. ANAKINRA [Concomitant]
     Active Substance: ANAKINRA
     Dates: start: 20200529, end: 20200531
  2. REMDESIVIR. [Suspect]
     Active Substance: REMDESIVIR
     Indication: COVID-19
     Route: 042
     Dates: start: 20200601, end: 20200607
  3. COLCHICINE. [Concomitant]
     Active Substance: COLCHICINE
     Dates: start: 20200529, end: 20200607
  4. REMDESIVIR. [Suspect]
     Active Substance: REMDESIVIR
     Indication: ACUTE RESPIRATORY DISTRESS SYNDROME
     Route: 042
     Dates: start: 20200601, end: 20200607
  5. TOCILIZUMAB. [Concomitant]
     Active Substance: TOCILIZUMAB
     Dates: start: 20200531, end: 20200531

REACTIONS (3)
  - Renal failure [None]
  - Metabolic acidosis [None]
  - Haemodialysis [None]

NARRATIVE: CASE EVENT DATE: 20200607
